FAERS Safety Report 7536753-3 (Version None)
Quarter: 2011Q2

REPORT INFORMATION
  Report Type: 
  Country: None (occurrence: None)
  Receive Date: 20110609
  Receipt Date: 20110606
  Transmission Date: 20111010
  Serious: Yes (Death)
  Sender: FDA-Public Use
  Company Number: D0070672A

PATIENT
  Sex: Male
  Weight: 80 kg

DRUGS (4)
  1. NORVIR [Concomitant]
     Route: 065
  2. TELZIR [Suspect]
     Route: 065
  3. ABACAVIR SULFATE AND LAMIVUDINE [Suspect]
     Indication: HIV INFECTION
     Dosage: 900MG PER DAY
     Route: 065
     Dates: start: 20080201
  4. TRIZIVIR [Suspect]
     Route: 065

REACTIONS (2)
  - ATRIAL FIBRILLATION [None]
  - MYOCARDIAL INFARCTION [None]
